FAERS Safety Report 4784033-1 (Version None)
Quarter: 2005Q3

REPORT INFORMATION
  Report Type: 
  Country: None (occurrence: None)
  Receive Date: 20050927
  Receipt Date: 20050810
  Transmission Date: 20060218
  Serious: No
  Sender: FDA-Public Use
  Company Number: USA0508105194

PATIENT
  Age: 84 Year
  Sex: Male

DRUGS (1)
  1. HUMATROPE [Suspect]
     Dosage: 0.3 MG
     Dates: start: 20050701

REACTIONS (2)
  - FLATULENCE [None]
  - INJECTION SITE HAEMORRHAGE [None]
